FAERS Safety Report 7443060-6 (Version None)
Quarter: 2011Q2

REPORT INFORMATION
  Report Type: 
  Country: None (occurrence: None)
  Receive Date: 20110428
  Receipt Date: 20101115
  Transmission Date: 20111010
  Serious: No
  Sender: FDA-Public Use
  Company Number: US-MYLANLABS-2010S1021067

PATIENT
  Age: 57 Year
  Sex: Male

DRUGS (4)
  1. SINGULAIR [Concomitant]
     Indication: ASTHMA
  2. ALBUTEROL INHALER [Concomitant]
     Indication: ASTHMA
  3. IPRATROPIUM BROMIDE AND ALBUTEROL SULFATE [Suspect]
     Indication: ASTHMA
     Route: 055
     Dates: start: 20100101
  4. IPRATROPIUM BROMIDE AND ALBUTEROL SULFATE [Suspect]
     Route: 055
     Dates: start: 20100101

REACTIONS (2)
  - DRUG INEFFECTIVE [None]
  - ASTHMA [None]
